FAERS Safety Report 12866562 (Version 1)
Quarter: 2016Q4

REPORT INFORMATION
  Report Type: Spontaneous
  Country: DE (occurrence: DE)
  Receive Date: 20161020
  Receipt Date: 20161020
  Transmission Date: 20170207
  Serious: Yes (Hospitalization)
  Sender: FDA-Public Use
  Company Number: DE-ELI_LILLY_AND_COMPANY-DE201610003416

PATIENT
  Sex: Male

DRUGS (1)
  1. CIALIS [Suspect]
     Active Substance: TADALAFIL
     Indication: ERECTILE DYSFUNCTION
     Dosage: 5 MG, UNKNOWN
     Route: 048

REACTIONS (6)
  - Pyrexia [Unknown]
  - Blood urine present [Unknown]
  - Suspected counterfeit product [Unknown]
  - Incontinence [Unknown]
  - Inflammation [Unknown]
  - Dysuria [Unknown]

NARRATIVE: CASE EVENT DATE: 201503
